FAERS Safety Report 9488702 (Version 1)
Quarter: 2013Q3

REPORT INFORMATION
  Report Type: Spontaneous
  Country: ZA (occurrence: ZA)
  Receive Date: 20130829
  Receipt Date: 20130829
  Transmission Date: 20140515
  Serious: Yes (Death)
  Sender: FDA-Public Use
  Company Number: ZA-MERCK-1308ZAF012155

PATIENT
  Sex: Male

DRUGS (1)
  1. CANCIDAS 50MG [Suspect]
     Dosage: UNK
     Dates: start: 20130530

REACTIONS (1)
  - Death [Fatal]
